FAERS Safety Report 9387454 (Version 1)
Quarter: 2013Q3

REPORT INFORMATION
  Report Type: Spontaneous
  Country: US (occurrence: None)
  Receive Date: 20130702
  Receipt Date: 20130702
  Transmission Date: 20140515
  Serious: Yes (Hospitalization)
  Sender: FDA-Public Use
  Company Number: 2013P1010720

PATIENT
  Age: 59 Year
  Sex: Female

DRUGS (1)
  1. PHENTERMINE [Suspect]

REACTIONS (9)
  - Fatigue [None]
  - Pyrexia [None]
  - Nausea [None]
  - Dyspnoea [None]
  - Urine output decreased [None]
  - Blood pressure increased [None]
  - Weight decreased [None]
  - Tubulointerstitial nephritis [None]
  - Normochromic normocytic anaemia [None]
